FAERS Safety Report 5656633-8 (Version None)
Quarter: 2008Q1

REPORT INFORMATION
  Report Type: 
  Country: None (occurrence: None)
  Receive Date: 20080219
  Receipt Date: 20071211
  Transmission Date: 20080703
  Serious: No
  Sender: FDA-Public Use
  Company Number: WAES 0712USA02832

PATIENT
  Age: 62 Year
  Sex: Male

DRUGS (14)
  1. JANUVIA [Suspect]
     Indication: TYPE 2 DIABETES MELLITUS
     Dosage: 100 MG/DAILY/PO ; DAILY/PO
     Route: 048
     Dates: start: 20071116, end: 20071119
  2. JANUVIA [Suspect]
     Indication: TYPE 2 DIABETES MELLITUS
     Dosage: 100 MG/DAILY/PO ; DAILY/PO
     Route: 048
     Dates: start: 20071203, end: 20071210
  3. ACCUPRIL [Concomitant]
  4. PRILOSEC [Concomitant]
  5. VYTORIN [Concomitant]
  6. AMLDOIPINE BESYLATE [Concomitant]
  7. ATENOLOL [Concomitant]
  8. GABAPENTIN [Concomitant]
  9. GLIPIZIDE [Concomitant]
  10. HYOSCYAMINE [Concomitant]
  11. MECLIZINE [Concomitant]
  12. METFORMIN HCL [Concomitant]
  13. NITROGLYCERIN [Concomitant]
  14. WARFARIN SODIUM [Concomitant]

REACTIONS (5)
  - DIZZINESS [None]
  - PHARYNGOLARYNGEAL PAIN [None]
  - PRURITUS [None]
  - RASH [None]
  - WRONG TECHNIQUE IN DRUG USAGE PROCESS [None]
